FAERS Safety Report 8280505-6 (Version None)
Quarter: 2012Q2

REPORT INFORMATION
  Report Type: 
  Country: None (occurrence: None)
  Receive Date: 20120412
  Receipt Date: 20110802
  Transmission Date: 20120825
  Serious: No
  Sender: FDA-Public Use
  Company Number: US-ASTRAZENECA-2011SE08912

PATIENT
  Age: 52 Year
  Sex: Female

DRUGS (5)
  1. BUSPIRONE HCL [Concomitant]
  2. NEXIUM [Suspect]
     Route: 048
  3. DIAZEPAM [Concomitant]
  4. TOPROL-XL [Suspect]
     Route: 048
  5. PRAVASTATIN [Concomitant]

REACTIONS (6)
  - DRUG DOSE OMISSION [None]
  - GASTRIC DISORDER [None]
  - LIVER DISORDER [None]
  - GASTROOESOPHAGEAL REFLUX DISEASE [None]
  - DIABETES MELLITUS [None]
  - BLOOD CHOLESTEROL INCREASED [None]
